FAERS Safety Report 16678649 (Version 1)
Quarter: 2019Q3

REPORT INFORMATION
  Report Type: Spontaneous
  Country: FR (occurrence: FR)
  Receive Date: 20190807
  Receipt Date: 20190807
  Transmission Date: 20191004
  Serious: Yes (Hospitalization)
  Sender: FDA-Public Use
  Company Number: FR-PFIZER INC-2019331929

PATIENT
  Age: 53 Year
  Sex: Female

DRUGS (19)
  1. INSULIN [Concomitant]
     Active Substance: INSULIN NOS
     Indication: DIABETES MELLITUS
     Dosage: UNK
     Route: 058
     Dates: start: 20190402
  2. EFFERALGAN [Suspect]
     Active Substance: ACETAMINOPHEN
     Dosage: 27 DF, SINGLE
     Route: 048
     Dates: start: 20190401, end: 20190401
  3. LAMICTAL [Suspect]
     Active Substance: LAMOTRIGINE
     Dosage: 6 DF, SINGLE
     Route: 048
     Dates: start: 20190401, end: 20190401
  4. AUGMENTIN [Suspect]
     Active Substance: AMOXICILLIN\CLAVULANATE POTASSIUM
     Indication: ANTIBIOTIC THERAPY
     Dosage: UNK, 2X/DAY (2G/200MG EVERY 12 HOURS)
     Route: 042
     Dates: start: 20190401, end: 20190409
  5. THERALENE [Concomitant]
     Active Substance: TRIMEPRAZINE
     Route: 048
     Dates: end: 20190331
  6. FRAGMINE [Suspect]
     Active Substance: DALTEPARIN SODIUM
     Indication: THROMBOSIS PROPHYLAXIS
     Dosage: 1 DF, 1X/DAY
     Route: 058
     Dates: start: 20190402
  7. BURINEX [Suspect]
     Active Substance: BUMETANIDE
     Indication: HYPERNATRAEMIA
     Dosage: 2 MG, 1X/DAY
     Route: 042
     Dates: start: 20190405
  8. NARCAN [Suspect]
     Active Substance: NALOXONE HYDROCHLORIDE
     Dosage: 1 DF, SINGLE
     Route: 042
     Dates: start: 20190401, end: 20190401
  9. HIDONAC [Suspect]
     Active Substance: ACETYLCYSTEINE
     Dosage: UNK (ACCORDING TO SMPC WITH WEIGHT ADJUSTMENT)
     Route: 042
  10. THERALENE [Concomitant]
     Active Substance: TRIMEPRAZINE
     Indication: DEPRESSION
     Dosage: UNK
     Route: 048
     Dates: start: 20190401, end: 20190401
  11. LASILIX [FUROSEMIDE] [Suspect]
     Active Substance: FUROSEMIDE
     Indication: HYPERNATRAEMIA
     Dosage: 40 MG, 1X/DAY
     Route: 042
     Dates: start: 20190403, end: 20190405
  12. KETAMINE [Suspect]
     Active Substance: KETAMINE
     Indication: ANAESTHESIA
     Dosage: UNK
     Route: 041
     Dates: start: 20190401, end: 20190401
  13. EUPANTOL [Concomitant]
     Active Substance: PANTOPRAZOLE SODIUM
     Indication: GASTRIC ULCER
     Dosage: UNK
     Route: 042
     Dates: start: 20190402
  14. HYDROCORTISONE SODIUM SUCCINATE [Suspect]
     Active Substance: HYDROCORTISONE SODIUM SUCCINATE
     Dosage: UNK
     Route: 042
     Dates: start: 20190402
  15. GENTAMICINE [GENTAMICIN] [Suspect]
     Active Substance: GENTAMICIN
     Indication: ANTIBIOTIC THERAPY
     Dosage: 400 MG, 1X/DAY
     Route: 042
     Dates: start: 20190402, end: 20190405
  16. MIDAZOLAM [Suspect]
     Active Substance: MIDAZOLAM HYDROCHLORIDE
     Indication: SEDATION
     Dosage: UNK
     Route: 042
     Dates: start: 20190402
  17. FLUOXETINE HYDROCHLORIDE. [Suspect]
     Active Substance: FLUOXETINE HYDROCHLORIDE
     Dosage: 14 DF, SINGLE
     Route: 048
     Dates: start: 20190401, end: 20190401
  18. CELOCURINE [SUXAMETHONIUM CHLORIDE] [Suspect]
     Active Substance: SUCCINYLCHOLINE CHLORIDE
     Indication: ANAESTHESIA
     Dosage: UNK
     Route: 041
     Dates: start: 20190401, end: 20190401
  19. CALCIPARINE [Concomitant]
     Active Substance: HEPARIN CALCIUM
     Indication: THROMBOSIS PROPHYLAXIS
     Dosage: UNK
     Route: 058
     Dates: start: 20190405, end: 20190412

REACTIONS (2)
  - Poisoning deliberate [Recovered/Resolved]
  - Thrombocytopenia [Recovered/Resolved]

NARRATIVE: CASE EVENT DATE: 20190401
